FAERS Safety Report 9913789 (Version 1)
Quarter: 2014Q1

REPORT INFORMATION
  Report Type: Spontaneous
  Country: US (occurrence: None)
  Receive Date: 20140218
  Receipt Date: 20140218
  Transmission Date: 20141002
  Serious: Yes (Other)
  Sender: FDA-Public Use
  Company Number: None

PATIENT
  Age: 13 Year
  Sex: Male
  Weight: 43.09 kg

DRUGS (1)
  1. FOCALIN XR [Suspect]
     Indication: ATTENTION DEFICIT/HYPERACTIVITY DISORDER
     Route: 048
     Dates: start: 20140115, end: 20140216

REACTIONS (8)
  - Psychomotor hyperactivity [None]
  - Condition aggravated [None]
  - Educational problem [None]
  - Fatigue [None]
  - Hypersomnia [None]
  - Aggression [None]
  - Feeling abnormal [None]
  - Product substitution issue [None]
